FAERS Safety Report 14712477 (Version 5)
Quarter: 2018Q2

REPORT INFORMATION
  Report Type: Report from Study
  Country: US (occurrence: US)
  Receive Date: 20180404
  Receipt Date: 20180618
  Transmission Date: 20180711
  Serious: Yes (Death, Hospitalization, Other)
  Sender: FDA-Public Use
  Company Number: US-AMGEN-USASL2018043475

PATIENT
  Age: 75 Year
  Sex: Female

DRUGS (3)
  1. YERVOY [Concomitant]
     Active Substance: IPILIMUMAB
     Indication: MALIGNANT MELANOMA
     Dosage: UNK
     Dates: start: 20171215
  2. IMLYGIC [Suspect]
     Active Substance: TALIMOGENE LAHERPAREPVEC
     Indication: METASTATIC MALIGNANT MELANOMA
     Dosage: (FOUR 1ML VIALS OF 106TH STRENGTH) UNK
     Route: 026
     Dates: start: 20180320, end: 20180327
  3. KEYTRUDA [Concomitant]
     Active Substance: PEMBROLIZUMAB
     Indication: MALIGNANT MELANOMA
     Dosage: UNK
     Dates: start: 20180116

REACTIONS (15)
  - Stomatitis [Recovering/Resolving]
  - Injection site erythema [Recovering/Resolving]
  - Renal failure [Recovering/Resolving]
  - Embolic stroke [Recovering/Resolving]
  - Injection site discharge [Recovering/Resolving]
  - Death [Fatal]
  - Off label use [Unknown]
  - Cellulitis [Recovering/Resolving]
  - Sepsis [Unknown]
  - Encephalitis [Recovering/Resolving]
  - Encephalopathy [Unknown]
  - Injection site discomfort [Recovering/Resolving]
  - Systemic inflammatory response syndrome [Unknown]
  - Herpes simplex [Recovering/Resolving]
  - Injection site vesicles [Recovering/Resolving]

NARRATIVE: CASE EVENT DATE: 2018
